FAERS Safety Report 18986418 (Version 1)
Quarter: 2021Q1

REPORT INFORMATION
  Report Type: Spontaneous
  Country: US (occurrence: US)
  Receive Date: 20210309
  Receipt Date: 20210309
  Transmission Date: 20210420
  Serious: Yes (Other)
  Sender: FDA-Public Use
  Company Number: US-AMGEN-USASP2021032603

PATIENT
  Age: 79 Year
  Sex: Male

DRUGS (15)
  1. PLAVIX [Concomitant]
     Active Substance: CLOPIDOGREL BISULFATE
     Dosage: UNK UNK, QD IN EVENING
  2. IRON [Concomitant]
     Active Substance: IRON
     Dosage: UNK UNK, QD IN AM
  3. BENICAR HCT [Concomitant]
     Active Substance: HYDROCHLOROTHIAZIDE\OLMESARTAN MEDOXOMIL
     Dosage: 40?25 MG ONCE A DAY AT BEDTIME, QD
  4. NAPROXEN. [Concomitant]
     Active Substance: NAPROXEN
     Indication: GASTROOESOPHAGEAL REFLUX DISEASE
     Dosage: 500 MILLIGRAM, BID
  5. METOPROLOL. [Concomitant]
     Active Substance: METOPROLOL
     Indication: BLOOD PRESSURE ABNORMAL
     Dosage: UNK UNK, QD IN EVENING
  6. CILOSTAZOL. [Concomitant]
     Active Substance: CILOSTAZOL
  7. ALLOPURINOL. [Concomitant]
     Active Substance: ALLOPURINOL
     Dosage: UNK UNK, QD IN AM
  8. VITAMIN B12 [VITAMIN B12 NOS] [Concomitant]
     Active Substance: CYANOCOBALAMIN
  9. RABEPRAZOLE [Concomitant]
     Active Substance: RABEPRAZOLE
     Indication: GASTROOESOPHAGEAL REFLUX DISEASE
     Dosage: UNK UNK, BID
  10. CALCIUM [Concomitant]
     Active Substance: CALCIUM
     Dosage: UNK UNK, QD IN AM
  11. REPATHA [Suspect]
     Active Substance: EVOLOCUMAB
     Indication: ARTERIAL DISORDER
     Dosage: 140 MILLIGRAM, Q2WK
     Route: 058
     Dates: start: 202101
  12. AMLODIPINE [Concomitant]
     Active Substance: AMLODIPINE BESYLATE
  13. MUVA [Concomitant]
     Dosage: UNK UNK, QD IN AM
  14. ASA [Concomitant]
     Active Substance: ASPIRIN
     Dosage: 81 MILLIGRAM, QD IN AM
  15. TYLENOL [Concomitant]
     Active Substance: ACETAMINOPHEN
     Indication: PAIN
     Dosage: 500 MILLIGRAM, BID

REACTIONS (4)
  - Abdominal discomfort [Unknown]
  - Neuropathy peripheral [Unknown]
  - Abdominal pain upper [Unknown]
  - Nausea [Unknown]

NARRATIVE: CASE EVENT DATE: 2021
